FAERS Safety Report 9700962 (Version 1)
Quarter: 2013Q4

REPORT INFORMATION
  Report Type: Spontaneous
  Country: US (occurrence: US)
  Receive Date: 20131121
  Receipt Date: 20131121
  Transmission Date: 20140711
  Serious: Yes (Death)
  Sender: FDA-Public Use
  Company Number: US-ASTELLAS-2013US011839

PATIENT
  Age: 42 Year
  Sex: Male
  Weight: 99 kg

DRUGS (9)
  1. XTANDI [Suspect]
     Indication: PROSTATE CANCER
     Dosage: 160 MG, UID/QD
     Route: 048
     Dates: start: 201303, end: 201305
  2. OXYCODONE [Concomitant]
     Indication: PRODUCT USED FOR UNKNOWN INDICATION
     Dosage: UNK
     Route: 065
  3. FLOMAX [Concomitant]
     Indication: BENIGN PROSTATIC HYPERPLASIA
     Dosage: 0.4 MG, UID/QD
     Route: 048
  4. POTASSIUM [Concomitant]
     Indication: PRODUCT USED FOR UNKNOWN INDICATION
     Dosage: 10 MEQ, UNKNOWN/D
     Route: 048
  5. MAGNESIUM OXIDE [Concomitant]
     Indication: DYSPEPSIA
     Dosage: 4 ML, BID
     Route: 046
  6. PREDNISONE [Concomitant]
     Indication: COLITIS ULCERATIVE
     Dosage: 10 MG, UID/QD
     Route: 048
  7. RESTORIL                           /00054301/ [Concomitant]
     Indication: INSOMNIA
     Dosage: 10 MG, UID/QD
     Route: 048
  8. IMODIUM [Concomitant]
     Indication: DIARRHOEA
     Dosage: UNK
     Route: 065
  9. FENTANYL                           /00174602/ [Concomitant]
     Indication: PAIN
     Dosage: 200 UG, UNKNOWN/D
     Route: 065

REACTIONS (1)
  - Death [Fatal]
